FAERS Safety Report 6616161-X (Version None)
Quarter: 2010Q1

REPORT INFORMATION
  Report Type: 
  Country: None (occurrence: None)
  Receive Date: 20100305
  Receipt Date: 20100223
  Transmission Date: 20100710
  Serious: Yes (Other)
  Sender: FDA-Public Use
  Company Number: BR-PFIZER INC-2009310974

PATIENT
  Age: 54 Year
  Sex: Female
  Weight: 62 kg

DRUGS (6)
  1. CHAMPIX [Suspect]
     Indication: TOBACCO USER
     Dosage: 1 MG, EVERY TWELVE HOURS
     Route: 048
     Dates: start: 20091215, end: 20100129
  2. DIAZEPAM [Concomitant]
     Dosage: UNK
  3. NEOZINE [Concomitant]
     Dosage: UNK
  4. DULCOLAX [Concomitant]
     Dosage: UNK
  5. PURAN T4 [Concomitant]
     Dosage: UNK
  6. RIVOTRIL [Concomitant]
     Dosage: UNK

REACTIONS (4)
  - LIVER DISORDER [None]
  - PRESYNCOPE [None]
  - RASH MACULAR [None]
  - VAGINAL CYST [None]
